FAERS Safety Report 4303232-6 (Version None)
Quarter: 2004Q1

REPORT INFORMATION
  Report Type: 
  Country: None (occurrence: None)
  Receive Date: 20040223
  Receipt Date: 20040219
  Transmission Date: 20041129
  Serious: Yes (Hospitalization)
  Sender: FDA-Public Use
  Company Number: DSA_23976_2004

PATIENT
  Age: 39 Year
  Sex: Male

DRUGS (3)
  1. LORAZEPAM [Suspect]
     Dosage: 20 MG ONCE PO
     Route: 048
     Dates: start: 20040204, end: 20040204
  2. CITALOPRAM [Suspect]
     Dosage: 1200 MG ONCE PO
     Route: 048
     Dates: start: 20040204, end: 20040204
  3. ZYPREXA [Suspect]
     Dosage: 390 MG ONCE PO
     Route: 048
     Dates: start: 20040204, end: 20040204

REACTIONS (7)
  - AGITATION [None]
  - HYPERTENSION [None]
  - INTENTIONAL OVERDOSE [None]
  - MULTIPLE DRUG OVERDOSE [None]
  - SOMNOLENCE [None]
  - TACHYCARDIA [None]
  - VOMITING [None]
